FAERS Safety Report 21843105 (Version 1)
Quarter: 2023Q1

REPORT INFORMATION
  Report Type: Spontaneous
  Country: US (occurrence: None)
  Receive Date: 20230109
  Receipt Date: 20230109
  Transmission Date: 20230418
  Serious: Yes (Other)
  Sender: FDA-Public Use
  Company Number: None

PATIENT
  Age: 70 Year
  Sex: Male
  Weight: 66.6 kg

DRUGS (10)
  1. FLUOROURACIL [Suspect]
     Active Substance: FLUOROURACIL
     Indication: Precancerous cells present
     Dosage: FREQUENCY : TWICE A DAY;?
     Route: 061
     Dates: start: 20221222, end: 20230109
  2. ATORVASTATIN [Concomitant]
     Active Substance: ATORVASTATIN
  3. ISOSORBIDE MONONITRATE [Concomitant]
  4. METOPROLOL [Concomitant]
  5. RANOLAZINE [Concomitant]
     Active Substance: RANOLAZINE
  6. ASPIRIN [Concomitant]
     Active Substance: ASPIRIN
  7. ESOMEPRAZOLE [Concomitant]
  8. MULTIVITAMIN/MINERAL CALCIUM [Concomitant]
  9. MAGNESIUM [Concomitant]
  10. VITAMIN D3 [Concomitant]
     Active Substance: CHOLECALCIFEROL

REACTIONS (3)
  - Insomnia [None]
  - Headache [None]
  - Therapy cessation [None]

NARRATIVE: CASE EVENT DATE: 20230109
